FAERS Safety Report 21088451 (Version 6)
Quarter: 2022Q4

REPORT INFORMATION
  Report Type: Report from Study
  Country: PL (occurrence: PL)
  Receive Date: 20220715
  Receipt Date: 20221018
  Transmission Date: 20230113
  Serious: Yes (Hospitalization, Other)
  Sender: FDA-Public Use
  Company Number: PL-NOVARTISPH-NVSC2022PL160078

PATIENT
  Age: 54 Year
  Sex: Female
  Weight: 85 kg

DRUGS (14)
  1. ALPELISIB [Suspect]
     Active Substance: ALPELISIB
     Indication: Hormone receptor positive HER2 negative breast cancer
     Dosage: UNK (1X2 TABLETS OF 150 MG TAKEN CONTINUOUSLY)
     Route: 048
     Dates: start: 20210804, end: 20220526
  2. FULVESTRANT [Suspect]
     Active Substance: FULVESTRANT
     Indication: Hormone receptor positive HER2 negative breast cancer
     Dosage: UNK (500MG IN THE SCHEME 1 X MONTH)
     Route: 030
     Dates: start: 20210804, end: 20220509
  3. FULVESTRANT [Suspect]
     Active Substance: FULVESTRANT
     Dosage: UNK  (500MG IN THE SCHEME 1 X MONTH)
     Route: 030
     Dates: start: 20210804, end: 20220509
  4. FULVESTRANT [Suspect]
     Active Substance: FULVESTRANT
     Dosage: UNK  (500MG IN THE SCHEME 1 X MONTH)
     Route: 030
     Dates: start: 20210804
  5. FULVESTRANT [Suspect]
     Active Substance: FULVESTRANT
     Dosage: UNK
     Route: 065
     Dates: start: 20210901
  6. FULVESTRANT [Suspect]
     Active Substance: FULVESTRANT
     Dosage: UNK
     Route: 065
     Dates: start: 20220412, end: 20220509
  7. FASLODEX [Suspect]
     Active Substance: FULVESTRANT
     Indication: Hormone receptor positive HER2 negative breast cancer
     Dosage: UNK
     Route: 065
     Dates: start: 20210804
  8. FASLODEX [Suspect]
     Active Substance: FULVESTRANT
     Dosage: UNK (500 MG IN THE SCHEME 1,14 AND THEN ONCE ON 4 WEEKS)
     Route: 030
     Dates: start: 20210929, end: 20220217
  9. FASLODEX [Suspect]
     Active Substance: FULVESTRANT
     Dosage: UNK  (500 MG IN THE SCHEME 1,14 AND THEN ONCE ON 4 WEEKS)
     Route: 030
     Dates: start: 20210929, end: 20220217
  10. FASLODEX [Suspect]
     Active Substance: FULVESTRANT
     Dosage: UNK  (500 MG IN THE SCHEME 1,14 AND THEN ONCE ON 4 WEEKS)
     Route: 030
     Dates: start: 20210929, end: 20220217
  11. BISOPROLOL [Concomitant]
     Active Substance: BISOPROLOL
     Indication: Essential hypertension
     Dosage: 5 MG (1X7)
     Route: 048
  12. EUTHYROX [Concomitant]
     Active Substance: LEVOTHYROXINE SODIUM
     Indication: Hypothyroidism
     Dosage: UNK (FOR A CHANGE ON EVEN AND ODD DAYS 125UQ / 175UQ)
     Route: 048
  13. GLICLAZIDE [Concomitant]
     Active Substance: GLICLAZIDE
     Indication: Product used for unknown indication
     Dosage: 30 MG
     Route: 048
     Dates: start: 202202, end: 202203
  14. GLICLAZIDE [Concomitant]
     Active Substance: GLICLAZIDE
     Dosage: 30 MG (1 X1 TABLE)
     Route: 048
     Dates: start: 202205

REACTIONS (4)
  - Metastases to central nervous system [Recovering/Resolving]
  - Vomiting [Recovered/Resolved]
  - Glucose tolerance impaired [Recovered/Resolved]
  - Hyperglycaemia [Unknown]

NARRATIVE: CASE EVENT DATE: 20211101
